FAERS Safety Report 9547345 (Version 1)
Quarter: 2013Q2

REPORT INFORMATION
  Report Type: Spontaneous
  Country: US (occurrence: None)
  Receive Date: 20130606
  Receipt Date: 20130606
  Transmission Date: 20140414
  Serious: No
  Sender: FDA-Public Use
  Company Number: 2013PROUSA02627

PATIENT
  Age: 85 Year
  Sex: Male
  Weight: 87.45 kg

DRUGS (9)
  1. PROVENGE (SIPULEUCEL-T) SUSPENSION, 250ML [Suspect]
     Route: 042
     Dates: start: 20130207, end: 20130207
  2. CLONAZEPAM (CLONAZEPAM) [Concomitant]
  3. BENICAR (OLMESARTAN MEDOXOMIL) [Concomitant]
  4. TERAZOSIN (TERAZOSIN HYDROCHLORIDE) [Concomitant]
  5. SERTRALINE (SERTRALINE HYDROCHLORIDE) [Concomitant]
  6. CALCIUM (CALCIUM GLUCONATE) [Concomitant]
  7. VITAMIN D3 COLESCALCIFEROL) [Concomitant]
  8. OMEGA 3 (FISH OIL) [Concomitant]
  9. COQ10 (UBIDECARENONE) [Concomitant]

REACTIONS (1)
  - Chills [None]
